FAERS Safety Report 4311937-6 (Version None)
Quarter: 2004Q1

REPORT INFORMATION
  Report Type: 
  Country: None (occurrence: None)
  Receive Date: 20040303
  Receipt Date: 20040220
  Transmission Date: 20041129
  Serious: Yes (Hospitalization)
  Sender: FDA-Public Use
  Company Number: GB-JNJFOC-20040204777

PATIENT
  Age: 81 Year
  Sex: Male
  Weight: 71.7 kg

DRUGS (5)
  1. RISPERDAL [Suspect]
     Indication: DRUG USE FOR UNKNOWN INDICATION
     Dosage: 1 MG, IN 1 DAY, ORAL
     Route: 048
     Dates: start: 20040108, end: 20040209
  2. PERSANTIN RETARD (ALL OTHER THERAUPEUTIC PRODUCTS) [Concomitant]
  3. ASPIRIN [Concomitant]
  4. DIGOXIN [Concomitant]
  5. FUROSEMIDE [Concomitant]

REACTIONS (1)
  - THROMBOCYTOPENIA [None]
